FAERS Safety Report 4483633-6 (Version None)
Quarter: 2004Q4

REPORT INFORMATION
  Report Type: 
  Country: None (occurrence: None)
  Receive Date: 20041021
  Receipt Date: 20041021
  Transmission Date: 20050328
  Serious: Yes (Hospitalization)
  Sender: FDA-Public Use
  Company Number: None

PATIENT
  Age: 73 Year
  Sex: Male
  Weight: 69.9 kg

DRUGS (4)
  1. MINOCYCLINE HCL [Suspect]
  2. DICLOFENAC SODIUM [Concomitant]
  3. RANITIDINE HCL [Concomitant]
  4. AMMONIUM LACTATE [Concomitant]

REACTIONS (1)
  - RASH [None]
